FAERS Safety Report 9444575 (Version 1)
Quarter: 2013Q3

REPORT INFORMATION
  Report Type: Spontaneous
  Country: US (occurrence: None)
  Receive Date: 20130805
  Receipt Date: 20130805
  Transmission Date: 20140515
  Serious: Yes (Life-Threatening, Hospitalization)
  Sender: FDA-Public Use
  Company Number: DAV-AE-LOR-13-07

PATIENT
  Age: 6 Year
  Sex: Female
  Weight: 21.7 kg

DRUGS (1)
  1. LORAZEPAM [Suspect]
     Indication: OVERDOSE
     Dosage: 2 DOSES
     Route: 042

REACTIONS (4)
  - Agitation [None]
  - Serotonin syndrome [None]
  - Metabolic acidosis [None]
  - Condition aggravated [None]
